FAERS Safety Report 6323583-3 (Version None)
Quarter: 2009Q3

REPORT INFORMATION
  Report Type: 
  Country: None (occurrence: None)
  Receive Date: 20090824
  Receipt Date: 20090326
  Transmission Date: 20100115
  Serious: No
  Sender: FDA-Public Use
  Company Number: US-ABBOTT-09P-163-0564989-00

PATIENT
  Sex: Female

DRUGS (14)
  1. NIASPAN [Suspect]
     Indication: DRUG USE FOR UNKNOWN INDICATION
     Dates: start: 20090320
  2. CRESTOR [Concomitant]
     Indication: DRUG USE FOR UNKNOWN INDICATION
  3. HYZAAR [Concomitant]
     Indication: DRUG USE FOR UNKNOWN INDICATION
  4. ASPIRIN [Concomitant]
     Indication: DRUG USE FOR UNKNOWN INDICATION
     Dosage: 81MG X2
  5. CHROMIUM PICOLINATE [Concomitant]
     Indication: DRUG USE FOR UNKNOWN INDICATION
  6. COQ10 [Concomitant]
     Indication: DRUG USE FOR UNKNOWN INDICATION
  7. GLUCOSAMINE + CHONDROITIN [Concomitant]
     Indication: DRUG USE FOR UNKNOWN INDICATION
  8. SOY ISOFLAVONES [Concomitant]
     Indication: DRUG USE FOR UNKNOWN INDICATION
  9. ALPHA LIPOIC ACID [Concomitant]
     Indication: DRUG USE FOR UNKNOWN INDICATION
  10. PSYLLIUM HUSK [Concomitant]
     Indication: DRUG USE FOR UNKNOWN INDICATION
  11. SUPER BIATIN [Concomitant]
     Indication: DRUG USE FOR UNKNOWN INDICATION
  12. MULTI-VITAMIN [Concomitant]
     Indication: DRUG USE FOR UNKNOWN INDICATION
  13. ESTER C [Concomitant]
     Indication: DRUG USE FOR UNKNOWN INDICATION
  14. PSYLIUM MILK THISTLE [Concomitant]
     Indication: DRUG USE FOR UNKNOWN INDICATION

REACTIONS (2)
  - FLUSHING [None]
  - NAUSEA [None]
